FAERS Safety Report 7964968-9 (Version None)
Quarter: 2011Q4

REPORT INFORMATION
  Report Type: 
  Country: None (occurrence: None)
  Receive Date: 20111208
  Receipt Date: 20111201
  Transmission Date: 20120403
  Serious: Yes (Other)
  Sender: FDA-Public Use
  Company Number: CA-ROCHE-1019409

PATIENT
  Sex: Male
  Weight: 92.616 kg

DRUGS (3)
  1. LOMUSTINE [Concomitant]
     Indication: CHEMOTHERAPY
     Route: 048
  2. AVASTIN [Suspect]
     Indication: GLIOBLASTOMA
     Route: 042
     Dates: start: 20110610
  3. DILANTIN [Concomitant]

REACTIONS (1)
  - URINE PROTEIN/CREATININE RATIO DECREASED [None]
